FAERS Safety Report 22178536 (Version 5)
Quarter: 2023Q2

REPORT INFORMATION
  Report Type: Spontaneous
  Country: US (occurrence: US)
  Receive Date: 20230405
  Receipt Date: 20230627
  Transmission Date: 20230722
  Serious: No
  Sender: FDA-Public Use
  Company Number: US-KARYOPHARM-2023KPT000970

PATIENT

DRUGS (37)
  1. XPOVIO [Suspect]
     Active Substance: SELINEXOR
     Indication: Plasma cell myeloma
     Dosage: 100 MG, WEEKLY
     Route: 048
     Dates: start: 20230313, end: 202304
  2. XPOVIO [Suspect]
     Active Substance: SELINEXOR
     Dosage: 80 MG, WEEKLY
     Route: 048
     Dates: start: 20230519
  3. XPOVIO [Suspect]
     Active Substance: SELINEXOR
     Dosage: 100 MG, WEEKLY
     Route: 048
     Dates: start: 2023
  4. ACYCLOVIR [Concomitant]
     Active Substance: ACYCLOVIR
  5. AMLODIPINE [Concomitant]
     Active Substance: AMLODIPINE BESYLATE
  6. ATIVAN [Concomitant]
     Active Substance: LORAZEPAM
  7. BENZONATATE [Concomitant]
     Active Substance: BENZONATATE
  8. CLINDAMYCIN [Concomitant]
     Active Substance: CLINDAMYCIN
  9. DEXAMETHASONE [Concomitant]
     Active Substance: DEXAMETHASONE
  10. DILAUDID [Concomitant]
     Active Substance: HYDROMORPHONE HYDROCHLORIDE
  11. LOMOTIL [Concomitant]
     Active Substance: ATROPINE SULFATE\DIPHENOXYLATE HYDROCHLORIDE
  12. DOXYCYCLINE [Concomitant]
     Active Substance: DOXYCYCLINE
  13. DULOXETINE [Concomitant]
     Active Substance: DULOXETINE
  14. FUROSEMIDE [Concomitant]
     Active Substance: FUROSEMIDE
  15. GABAPENTIN [Concomitant]
     Active Substance: GABAPENTIN
  16. HEPARIN [Concomitant]
     Active Substance: HEPARIN SODIUM
  17. NORCO [Concomitant]
     Active Substance: ACETAMINOPHEN\HYDROCODONE BITARTRATE
  18. LEXAPRO [Concomitant]
     Active Substance: ESCITALOPRAM OXALATE
  19. LORAZEPAM [Concomitant]
     Active Substance: LORAZEPAM
  20. METHYLPHENIDATE [Concomitant]
     Active Substance: METHYLPHENIDATE
  21. METOPROLOL [Concomitant]
     Active Substance: METOPROLOL
  22. SODIUM CHLORIDE [Concomitant]
     Active Substance: SODIUM CHLORIDE
  23. NORTRIPTYLINE [Concomitant]
     Active Substance: NORTRIPTYLINE
  24. OXYCODONE [Concomitant]
     Active Substance: OXYCODONE
  25. OMEPRAZOLE [Concomitant]
     Active Substance: OMEPRAZOLE
  26. PERCOCET [Concomitant]
     Active Substance: ACETAMINOPHEN\OXYCODONE HYDROCHLORIDE
  27. PHENERGAN [Concomitant]
     Active Substance: PROMETHAZINE HYDROCHLORIDE
     Route: 042
  28. POMALYST [Concomitant]
     Active Substance: POMALIDOMIDE
  29. POSACONAZOLE [Concomitant]
     Active Substance: POSACONAZOLE
  30. PROCHLORPERAZINE [Concomitant]
     Active Substance: PROCHLORPERAZINE
  31. PROMETHAZINE DM [Concomitant]
     Active Substance: DEXTROMETHORPHAN HYDROBROMIDE\PROMETHAZINE HYDROCHLORIDE
     Route: 048
  32. PROTONIX [Concomitant]
     Active Substance: PANTOPRAZOLE SODIUM
  33. TRAMADOL [Concomitant]
     Active Substance: TRAMADOL
  34. TRIAMCINOLONE [Concomitant]
     Active Substance: TRIAMCINOLONE
  35. VORICONAZOLE [Concomitant]
     Active Substance: VORICONAZOLE
  36. VYVANSE [Concomitant]
     Active Substance: LISDEXAMFETAMINE DIMESYLATE
  37. ZOFRAN [Concomitant]
     Active Substance: ONDANSETRON HYDROCHLORIDE

REACTIONS (7)
  - Stomatitis [Not Recovered/Not Resolved]
  - COVID-19 [Unknown]
  - Nausea [Not Recovered/Not Resolved]
  - Diarrhoea [Unknown]
  - Neutropenia [Unknown]
  - Platelet count decreased [Recovering/Resolving]
  - Asthenia [Unknown]

NARRATIVE: CASE EVENT DATE: 20230301
